FAERS Safety Report 15771421 (Version 1)
Quarter: 2018Q4

REPORT INFORMATION
  Report Type: Spontaneous
  Country: US (occurrence: US)
  Receive Date: 20181228
  Receipt Date: 20181228
  Transmission Date: 20190205
  Serious: Yes (Other)
  Sender: FDA-Public Use
  Company Number: US-ASTRAZENECA-2018SF47775

PATIENT
  Age: 19160 Day

DRUGS (25)
  1. ATORVASTATIN [Concomitant]
     Active Substance: ATORVASTATIN
  2. TIZANIDINE. [Concomitant]
     Active Substance: TIZANIDINE
  3. LAMOTRIGINE. [Concomitant]
     Active Substance: LAMOTRIGINE
  4. LIPITOR [Concomitant]
     Active Substance: ATORVASTATIN CALCIUM
  5. METOPROLOL. [Concomitant]
     Active Substance: METOPROLOL
  6. DOXAZOSIN [Concomitant]
     Active Substance: DOXAZOSIN\DOXAZOSIN MESYLATE
  7. ZYRTEC [Concomitant]
     Active Substance: CETIRIZINE HYDROCHLORIDE
  8. PRILOSEC OTC [Suspect]
     Active Substance: OMEPRAZOLE MAGNESIUM
     Route: 065
     Dates: start: 20040220, end: 20041104
  9. PRILOSEC OTC [Suspect]
     Active Substance: OMEPRAZOLE MAGNESIUM
     Route: 065
     Dates: start: 20070411
  10. CARAFATE [Concomitant]
     Active Substance: SUCRALFATE
  11. GLIPIZIDE. [Concomitant]
     Active Substance: GLIPIZIDE
  12. ALBUTEROL. [Concomitant]
     Active Substance: ALBUTEROL
  13. CHLORTHALIDONE. [Concomitant]
     Active Substance: CHLORTHALIDONE
  14. CLONAZEPAM. [Concomitant]
     Active Substance: CLONAZEPAM
  15. FLUOXETINE [Concomitant]
     Active Substance: FLUOXETINE HYDROCHLORIDE
  16. OXYBUTYNIN. [Concomitant]
     Active Substance: OXYBUTYNIN CHLORIDE
  17. PRILOSEC [Suspect]
     Active Substance: OMEPRAZOLE MAGNESIUM
     Route: 065
     Dates: start: 20040220, end: 20041104
  18. AMLODIPINE [Concomitant]
     Active Substance: AMLODIPINE BESYLATE
  19. SIMVASTATIN. [Concomitant]
     Active Substance: SIMVASTATIN
  20. COLACE [Concomitant]
     Active Substance: DOCUSATE SODIUM
  21. LORATADINE. [Concomitant]
     Active Substance: LORATADINE
  22. ASPIRIN. [Concomitant]
     Active Substance: ASPIRIN
  23. RANITIDINE. [Concomitant]
     Active Substance: RANITIDINE
  24. TOPAMAX [Concomitant]
     Active Substance: TOPIRAMATE
  25. BETHANECHOL [Concomitant]
     Active Substance: BETHANECHOL

REACTIONS (4)
  - Nephrogenic anaemia [Unknown]
  - Renal failure [Unknown]
  - Chronic kidney disease [Unknown]
  - End stage renal disease [Unknown]

NARRATIVE: CASE EVENT DATE: 20170913
